FAERS Safety Report 4537119-0 (Version None)
Quarter: 2004Q4

REPORT INFORMATION
  Report Type: 
  Country: None (occurrence: None)
  Receive Date: 20041221
  Receipt Date: 20041213
  Transmission Date: 20050328
  Serious: Yes (Other)
  Sender: FDA-Public Use
  Company Number: US-2004-034173

PATIENT
  Age: 42 Year
  Sex: Female

DRUGS (5)
  1. BETASERON [Suspect]
     Indication: MULTIPLE SCLEROSIS
     Dosage: 8 MIU, EVERY 2D, SUBCUTANEOUS
     Route: 058
     Dates: start: 20020227, end: 20040521
  2. DITROPAN [Concomitant]
  3. DURADRIN (ISOMETHEPTENE, DICHLORALPHENAZONE) [Concomitant]
  4. AMITRIPTYLINE HCL [Concomitant]
  5. MACRODANTIN (MACRODANTIN) [Concomitant]

REACTIONS (3)
  - ERYTHEMA [None]
  - OEDEMA PERIPHERAL [None]
  - RETINAL HAEMORRHAGE [None]
